FAERS Safety Report 12633138 (Version 2)
Quarter: 2016Q3

REPORT INFORMATION
  Report Type: Spontaneous
  Country: US (occurrence: US)
  Receive Date: 20160808
  Receipt Date: 20160808
  Transmission Date: 20161109
  Serious: No
  Sender: FDA-Public Use
  Company Number: US-BEH-2016058554

PATIENT
  Sex: Female
  Weight: 91 kg

DRUGS (34)
  1. BUTORPHANOL [Concomitant]
     Active Substance: BUTORPHANOL
  2. ZOLPIDEM [Concomitant]
     Active Substance: ZOLPIDEM\ZOLPIDEM TARTRATE
  3. PROMETHAZINE [Concomitant]
     Active Substance: PROMETHAZINE\PROMETHAZINE HYDROCHLORIDE
  4. BYSTOLIC [Concomitant]
     Active Substance: NEBIVOLOL HYDROCHLORIDE
  5. ACETAMINOPHEN. [Concomitant]
     Active Substance: ACETAMINOPHEN
  6. RANITIDINE. [Concomitant]
     Active Substance: RANITIDINE
  7. LIDOCAINE/PRILOCAINE [Concomitant]
     Active Substance: LIDOCAINE\PRILOCAINE
  8. PATANASE [Concomitant]
     Active Substance: OLOPATADINE HYDROCHLORIDE
  9. ZOLPIDEM [Concomitant]
     Active Substance: ZOLPIDEM\ZOLPIDEM TARTRATE
  10. MAALOX ANTACID [Concomitant]
     Active Substance: ALUMINUM HYDROXIDE\DIMETHICONE\MAGNESIUM HYDROXIDE
  11. IBUPROFEN. [Concomitant]
     Active Substance: IBUPROFEN
  12. VITAMIN D [Concomitant]
     Active Substance: CHOLECALCIFEROL
  13. HIZENTRA [Suspect]
     Active Substance: HUMAN IMMUNOGLOBULIN G
     Indication: HYPOGAMMAGLOBULINAEMIA
     Route: 058
     Dates: start: 20130214
  14. DIPHENHYDRAMINE. [Concomitant]
     Active Substance: DIPHENHYDRAMINE
  15. XANAX [Concomitant]
     Active Substance: ALPRAZOLAM
  16. HYDROCODONE [Concomitant]
     Active Substance: HYDROCODONE
  17. EXCEDRIN [Concomitant]
     Active Substance: ACETAMINOPHEN\ASPIRIN\CAFFEINE
  18. BUTORPHANOL [Concomitant]
     Active Substance: BUTORPHANOL
  19. AMPHENTAMINE [Concomitant]
     Active Substance: AMPHETAMINE
  20. PROBIOTIC [Concomitant]
     Active Substance: PROBIOTICS NOS
  21. DUONEB [Concomitant]
     Active Substance: ALBUTEROL SULFATE\IPRATROPIUM BROMIDE
  22. DILTIAZEM. [Concomitant]
     Active Substance: DILTIAZEM
  23. SINGULAIR [Concomitant]
     Active Substance: MONTELUKAST SODIUM
  24. NASONEX [Concomitant]
     Active Substance: MOMETASONE FUROATE
  25. SUMATRIPTAN. [Concomitant]
     Active Substance: SUMATRIPTAN
  26. METFORMIN [Concomitant]
     Active Substance: METFORMIN HYDROCHLORIDE
  27. TRIAMCINOLONE [Concomitant]
     Active Substance: TRIAMCINOLONE
  28. INTEGRA [Concomitant]
  29. EPIPEN [Concomitant]
     Active Substance: EPINEPHRINE
  30. OMEPRAZOLE. [Concomitant]
     Active Substance: OMEPRAZOLE
  31. MULTIVITAMIN [Concomitant]
     Active Substance: VITAMINS
  32. SUPER B COMPLEX [Concomitant]
     Active Substance: CYANOCOBALAMIN\DEXPANTHENOL\NIACINAMIDE\PYRIDOXINE HYDROCHLORIDE\RIBOFLAVIN 5^-PHOSPHATE SODIUM\THIAMINE HYDROCHLORIDE\VITAMIN B COMPLEX
  33. AZO [Concomitant]
     Active Substance: PHENAZOPYRIDINE HYDROCHLORIDE
  34. OMEGA [Concomitant]
     Active Substance: CONVALLARIA MAJALIS\CRATAEGUS LAEVIGATA LEAF\PROXYPHYLLINE

REACTIONS (2)
  - Nausea [Unknown]
  - Headache [Unknown]
